FAERS Safety Report 10460980 (Version 1)
Quarter: 2014Q3

REPORT INFORMATION
  Report Type: Spontaneous
  Country: US (occurrence: US)
  Receive Date: 20140918
  Receipt Date: 20140918
  Transmission Date: 20150326
  Serious: No
  Sender: FDA-Public Use
  Company Number: 2014SP004292

PATIENT

DRUGS (10)
  1. IODINE [Suspect]
     Active Substance: IODINE
  2. NABUMETONE. [Suspect]
     Active Substance: NABUMETONE
  3. KEFLEX [Suspect]
     Active Substance: CEPHALEXIN
  4. ANSAID [Suspect]
     Active Substance: FLURBIPROFEN
  5. DEPAKOTE [Suspect]
     Active Substance: DIVALPROEX SODIUM
  6. PENICILLIN /00000906/ [Suspect]
     Active Substance: PENICILLIN
  7. AMPICILLIN [Suspect]
     Active Substance: AMPICILLIN
     Indication: PRODUCT USED FOR UNKNOWN INDICATION
  8. FLAGYL [Suspect]
     Active Substance: METRONIDAZOLE\METRONIDAZOLE HYDROCHLORIDE
  9. DOXYCYCLINE. [Suspect]
     Active Substance: DOXYCYCLINE
     Indication: PRODUCT USED FOR UNKNOWN INDICATION
  10. CANASA [Suspect]
     Active Substance: MESALAMINE

REACTIONS (1)
  - Drug hypersensitivity [Unknown]
